FAERS Safety Report 5391593-9 (Version None)
Quarter: 2007Q3

REPORT INFORMATION
  Report Type: 
  Country: None (occurrence: None)
  Receive Date: 20070717
  Receipt Date: 20070626
  Transmission Date: 20080115
  Serious: Yes (Death)
  Sender: FDA-Public Use
  Company Number: 6035120

PATIENT
  Sex: Male

DRUGS (2)
  1. DIABEX (METFORMIN) [Suspect]
     Indication: TYPE 2 DIABETES MELLITUS
  2. NEUROPATHIC MEDICINES (RHAMNUS PURSHIANA) [Concomitant]

REACTIONS (4)
  - GLOMERULAR FILTRATION RATE DECREASED [None]
  - MALAISE [None]
  - SEPTIC SHOCK [None]
  - VOMITING [None]
